FAERS Safety Report 25623351 (Version 1)
Quarter: 2025Q3

REPORT INFORMATION
  Report Type: Spontaneous
  Country: EU (occurrence: EU)
  Receive Date: 20250730
  Receipt Date: 20250730
  Transmission Date: 20251021
  Serious: Yes (Hospitalization)
  Sender: MYLAN
  Company Number: None

PATIENT
  Age: 80 Year
  Sex: Female
  Weight: 61 kg

DRUGS (8)
  1. CITALOPRAM [Suspect]
     Active Substance: CITALOPRAM
     Indication: Product used for unknown indication
     Dates: start: 20250624, end: 20250624
  2. CITALOPRAM [Suspect]
     Active Substance: CITALOPRAM
     Route: 048
     Dates: start: 20250624, end: 20250624
  3. CITALOPRAM [Suspect]
     Active Substance: CITALOPRAM
     Route: 048
     Dates: start: 20250624, end: 20250624
  4. CITALOPRAM [Suspect]
     Active Substance: CITALOPRAM
     Dates: start: 20250624, end: 20250624
  5. OXAZEPAM [Suspect]
     Active Substance: OXAZEPAM
     Indication: Product used for unknown indication
     Dates: start: 20250624, end: 20250624
  6. OXAZEPAM [Suspect]
     Active Substance: OXAZEPAM
     Route: 048
     Dates: start: 20250624, end: 20250624
  7. OXAZEPAM [Suspect]
     Active Substance: OXAZEPAM
     Route: 048
     Dates: start: 20250624, end: 20250624
  8. OXAZEPAM [Suspect]
     Active Substance: OXAZEPAM
     Dates: start: 20250624, end: 20250624

REACTIONS (2)
  - Coma [Recovered/Resolved]
  - Urinary retention [Recovered/Resolved]

NARRATIVE: CASE EVENT DATE: 20250624
